FAERS Safety Report 5270781-6 (Version None)
Quarter: 2007Q1

REPORT INFORMATION
  Report Type: 
  Country: None (occurrence: None)
  Receive Date: 20070319
  Receipt Date: 20070319
  Transmission Date: 20070707
  Serious: Yes (Hospitalization)
  Sender: FDA-Public Use
  Company Number: None

PATIENT
  Sex: Male

DRUGS (1)
  1. CELEBREX [Suspect]
     Indication: POSTOPERATIVE CARE
     Dosage: 200MG  BID PO
     Route: 048
     Dates: start: 20070312, end: 20070313

REACTIONS (1)
  - RENAL FAILURE [None]
